FAERS Safety Report 11024603 (Version 1)
Quarter: 2015Q2

REPORT INFORMATION
  Report Type: Spontaneous
  Country: US (occurrence: None)
  Receive Date: 20150413
  Receipt Date: 20150413
  Transmission Date: 20150821
  Serious: Yes (Death, Life-Threatening, Hospitalization)
  Sender: FDA-Public Use
  Company Number: None

PATIENT
  Age: 36 Year
  Sex: Male
  Weight: 55 kg

DRUGS (2)
  1. COUMADIN [Concomitant]
     Active Substance: WARFARIN SODIUM
  2. COUMADIN [Suspect]
     Active Substance: WARFARIN SODIUM
     Indication: JUGULAR VEIN THROMBOSIS
     Dosage: 10MG DAILY  X 5 MG MWF  ORAL
     Route: 048

REACTIONS (3)
  - International normalised ratio increased [None]
  - Arteriovenous fistula site haemorrhage [None]
  - Upper gastrointestinal haemorrhage [None]

NARRATIVE: CASE EVENT DATE: 20150331
